FAERS Safety Report 22101860 (Version 1)
Quarter: 2023Q1

REPORT INFORMATION
  Report Type: Spontaneous
  Country: CN (occurrence: CN)
  Receive Date: 20230316
  Receipt Date: 20230316
  Transmission Date: 20230418
  Serious: Yes (Other)
  Sender: FDA-Public Use
  Company Number: CN-ROCHE-3303726

PATIENT
  Age: 76 Year
  Sex: Female

DRUGS (2)
  1. ERLOTINIB [Suspect]
     Active Substance: ERLOTINIB
     Indication: Non-small cell lung cancer metastatic
     Dosage: 150 MG, ONCE DAILY (FOR 2 YEARS)
     Route: 048
  2. FIBROBLAST GROWTH FACTOR 2 (BOVINE) [Concomitant]
     Active Substance: FIBROBLAST GROWTH FACTOR 2 (BOVINE)
     Indication: Product used for unknown indication
     Dosage: UNK UNK, UNKNOWN FREQ.
     Route: 065

REACTIONS (2)
  - Corneal epithelium defect [Unknown]
  - Ulcerative keratitis [Recovering/Resolving]
